FAERS Safety Report 24668116 (Version 1)
Quarter: 2024Q4

REPORT INFORMATION
  Report Type: Spontaneous
  Country: CN (occurrence: CN)
  Receive Date: 20241127
  Receipt Date: 20241127
  Transmission Date: 20250114
  Serious: Yes (Hospitalization, Other)
  Sender: ASTELLAS
  Company Number: CN-ASTELLAS-2024-AER-020139

PATIENT
  Age: 61 Year
  Sex: Female

DRUGS (5)
  1. TACROLIMUS [Suspect]
     Active Substance: TACROLIMUS
     Indication: Lung transplant
     Route: 065
     Dates: start: 2020
  2. TACROLIMUS [Suspect]
     Active Substance: TACROLIMUS
     Dosage: LOW-DOSE (TARGETED WHOLE BLOOD TROUGH LEVEL OF 3^-7 NG/ML)
     Route: 065
  3. MYCOPHENOLATE MOFETIL [Concomitant]
     Active Substance: MYCOPHENOLATE MOFETIL
     Indication: Lung transplant
     Route: 065
     Dates: start: 2020
  4. PREDNISONE [Concomitant]
     Active Substance: PREDNISONE
     Indication: Lung transplant
     Route: 065
     Dates: start: 2020
  5. PREDNISONE [Concomitant]
     Active Substance: PREDNISONE
     Dosage: DOSE REDUCED
     Route: 065

REACTIONS (3)
  - Renal failure [Unknown]
  - Toxic encephalopathy [Recovered/Resolved]
  - Off label use [Unknown]

NARRATIVE: CASE EVENT DATE: 20200101
